FAERS Safety Report 6802774-9 (Version None)
Quarter: 2010Q2

REPORT INFORMATION
  Report Type: 
  Country: None (occurrence: None)
  Receive Date: 20100628
  Receipt Date: 20100614
  Transmission Date: 20101027
  Serious: Yes (Other)
  Sender: FDA-Public Use
  Company Number: US-ELI_LILLY_AND_COMPANY-US201006004316

PATIENT
  Sex: Female

DRUGS (14)
  1. FORTEO [Suspect]
     Indication: OSTEOPOROSIS
     Dosage: 20 UG, DAILY (1/D)
  2. SYNTHROID [Concomitant]
  3. MYSOLINE [Concomitant]
  4. TOPAMAX [Concomitant]
  5. ATIVAN [Concomitant]
  6. CHOLESTEROL- AND TRIGLYCERIDE REDUCERS [Concomitant]
  7. VITAMIN B6 [Concomitant]
  8. VITAMIN B-12 [Concomitant]
  9. VITAMIN D [Concomitant]
  10. VITAMIN B-12 [Concomitant]
  11. FOLIC ACID [Concomitant]
  12. LORTAB [Concomitant]
  13. DEPAKOTE [Concomitant]
  14. LITHIUM [Concomitant]

REACTIONS (10)
  - ARTHRALGIA [None]
  - ARTHRITIS [None]
  - CONTUSION [None]
  - FALL [None]
  - FEELING ABNORMAL [None]
  - MEMORY IMPAIRMENT [None]
  - OEDEMA PERIPHERAL [None]
  - PAIN [None]
  - PELVIC FRACTURE [None]
  - RENAL DISORDER [None]
